FAERS Safety Report 6406076-4 (Version None)
Quarter: 2009Q4

REPORT INFORMATION
  Report Type: 
  Country: None (occurrence: None)
  Receive Date: 20091016
  Receipt Date: 20091016
  Transmission Date: 20100525
  Serious: Yes (Other)
  Sender: FDA-Public Use
  Company Number: None

PATIENT
  Age: 36 Year
  Sex: Female
  Weight: 68.9467 kg

DRUGS (4)
  1. CIPROFLOXIN 500MG OR 750MG [Suspect]
     Indication: INFECTION
     Dosage: Q 12 HOURS PO
     Route: 048
     Dates: start: 19960715, end: 19960717
  2. CIPROFLOXIN 500MG OR 750MG [Suspect]
     Indication: URINARY TRACT INFECTION
     Dosage: Q 12 HOURS PO
     Route: 048
     Dates: start: 19960715, end: 19960717
  3. CIPROFLOXIN 500MG OR 750MG [Suspect]
     Indication: INFECTION
     Dosage: Q 12 HOURS PO
     Route: 048
     Dates: start: 19961019, end: 19961020
  4. CIPROFLOXIN 500MG OR 750MG [Suspect]
     Indication: URINARY TRACT INFECTION
     Dosage: Q 12 HOURS PO
     Route: 048
     Dates: start: 19961019, end: 19961020

REACTIONS (11)
  - ABNORMAL DREAMS [None]
  - ANXIETY [None]
  - ARTHRALGIA [None]
  - AUTOIMMUNE DISORDER [None]
  - CONVULSION [None]
  - CRYING [None]
  - DEPRESSED MOOD [None]
  - FEELING ABNORMAL [None]
  - MYALGIA [None]
  - NIGHTMARE [None]
  - TENDON RUPTURE [None]
